FAERS Safety Report 9715631 (Version 3)
Quarter: 2014Q1

REPORT INFORMATION
  Report Type: Spontaneous
  Country: AR (occurrence: AR)
  Receive Date: 20131127
  Receipt Date: 20140219
  Transmission Date: 20141002
  Serious: Yes (Hospitalization, Other)
  Sender: FDA-Public Use
  Company Number: AR-AMGEN-ARGSP2013082858

PATIENT
  Age: 54 Year
  Sex: Female

DRUGS (2)
  1. ENBREL [Suspect]
     Indication: PRODUCT USED FOR UNKNOWN INDICATION
     Dosage: 50 MG, WEEKLY
     Route: 065
     Dates: start: 20120105
  2. HIDROCORTIZON [Concomitant]
     Dosage: UNK
     Route: 048

REACTIONS (5)
  - Walking disability [Recovering/Resolving]
  - Hypotonia [Recovering/Resolving]
  - Pulmonary oedema [Recovering/Resolving]
  - Off label use [Not Recovered/Not Resolved]
  - Pneumonia [Recovering/Resolving]
